FAERS Safety Report 14872801 (Version 2)
Quarter: 2018Q2

REPORT INFORMATION
  Report Type: Spontaneous
  Country: BR (occurrence: BR)
  Receive Date: 20180510
  Receipt Date: 20180606
  Transmission Date: 20180711
  Serious: Yes (Death, Hospitalization)
  Sender: FDA-Public Use
  Company Number: BR-ROCHE-2119706

PATIENT
  Age: 38 Year
  Sex: Male

DRUGS (1)
  1. TECENTRIQ [Suspect]
     Active Substance: ATEZOLIZUMAB
     Indication: LUNG NEOPLASM
     Route: 042
     Dates: start: 20180411

REACTIONS (4)
  - Pyrexia [Unknown]
  - Pleural effusion [Unknown]
  - Pulmonary sepsis [Fatal]
  - Tachycardia [Unknown]
